FAERS Safety Report 19548164 (Version 1)
Quarter: 2021Q3

REPORT INFORMATION
  Report Type: Spontaneous
  Country: US (occurrence: US)
  Receive Date: 20210714
  Receipt Date: 20210714
  Transmission Date: 20211014
  Serious: Yes (Other)
  Sender: FDA-Public Use
  Company Number: NVSC2021US156273

PATIENT
  Age: 43 Year
  Sex: Female

DRUGS (10)
  1. RANITIDINE. [Suspect]
     Active Substance: RANITIDINE
     Indication: ABDOMINAL PAIN UPPER
  2. RANITIDINE. [Suspect]
     Active Substance: RANITIDINE
     Indication: ABDOMINAL DISTENSION
     Dosage: UNK, QD
     Route: 065
     Dates: end: 202005
  3. RANITIDINE. [Suspect]
     Active Substance: RANITIDINE
     Indication: ABDOMINAL DISTENSION
     Dosage: UNK, QD
     Route: 065
     Dates: end: 202005
  4. RANITIDINE. [Suspect]
     Active Substance: RANITIDINE
     Indication: MUSCLE TIGHTNESS
  5. RANITIDINE. [Suspect]
     Active Substance: RANITIDINE
     Indication: ERUCTATION
  6. RANITIDINE. [Suspect]
     Active Substance: RANITIDINE
     Indication: ABDOMINAL PAIN UPPER
  7. RANITIDINE. [Suspect]
     Active Substance: RANITIDINE
     Indication: ERUCTATION
  8. RANITIDINE. [Suspect]
     Active Substance: RANITIDINE
     Indication: CHEST DISCOMFORT
  9. RANITIDINE. [Suspect]
     Active Substance: RANITIDINE
     Indication: MUSCLE TIGHTNESS
  10. RANITIDINE. [Suspect]
     Active Substance: RANITIDINE
     Indication: CHEST DISCOMFORT

REACTIONS (3)
  - Renal cancer [Unknown]
  - Bladder cancer [Unknown]
  - Product use in unapproved indication [Unknown]

NARRATIVE: CASE EVENT DATE: 20060501
